FAERS Safety Report 7156181-2 (Version None)
Quarter: 2010Q4

REPORT INFORMATION
  Report Type: 
  Country: None (occurrence: None)
  Receive Date: 20101214
  Receipt Date: 20101201
  Transmission Date: 20110411
  Serious: Yes (Other)
  Sender: FDA-Public Use
  Company Number: US-ELI_LILLY_AND_COMPANY-US201012000323

PATIENT
  Sex: Male

DRUGS (5)
  1. FORTEO [Suspect]
     Indication: OSTEOPOROSIS
     Dosage: 20 UG, DAILY (1/D)
     Route: 058
  2. OXYCONTIN [Concomitant]
  3. ZOLOFT [Concomitant]
  4. ANTIHYPERTENSIVES [Concomitant]
     Indication: HYPERTENSION
  5. NEXIUM [Concomitant]

REACTIONS (6)
  - ABASIA [None]
  - DIABETIC AMYOTROPHY [None]
  - GENERAL PHYSICAL HEALTH DETERIORATION [None]
  - MALAISE [None]
  - MUSCLE ATROPHY [None]
  - MUSCLE DISORDER [None]
